FAERS Safety Report 6827616-7 (Version None)
Quarter: 2010Q3

REPORT INFORMATION
  Report Type: 
  Country: None (occurrence: None)
  Receive Date: 20100709
  Receipt Date: 20070120
  Transmission Date: 20110219
  Serious: Yes (Other)
  Sender: FDA-Public Use
  Company Number: US-PFIZER INC-2007006030

PATIENT
  Sex: Female
  Weight: 54.4 kg

DRUGS (6)
  1. CHANTIX [Suspect]
     Indication: SMOKING CESSATION THERAPY
     Dates: start: 20070119, end: 20070119
  2. IMURAN [Concomitant]
  3. FOSAMAX [Concomitant]
  4. PREDNISONE [Concomitant]
  5. FEMHRT [Concomitant]
  6. TPN [Concomitant]

REACTIONS (6)
  - ACTIVITIES OF DAILY LIVING IMPAIRED [None]
  - AGITATION [None]
  - EUPHORIC MOOD [None]
  - HEADACHE [None]
  - THINKING ABNORMAL [None]
  - VISUAL IMPAIRMENT [None]
